FAERS Safety Report 6969653-8 (Version None)
Quarter: 2010Q3

REPORT INFORMATION
  Report Type: 
  Country: None (occurrence: None)
  Receive Date: 20100908
  Receipt Date: 20100901
  Transmission Date: 20110219
  Serious: Yes (Other)
  Sender: FDA-Public Use
  Company Number: US-ASTRAZENECA-2009UW16228

PATIENT
  Age: 35 Year
  Sex: Female
  Weight: 93.4 kg

DRUGS (13)
  1. SEROQUEL [Suspect]
     Indication: SCHIZOPHRENIA
     Route: 048
     Dates: start: 20050501, end: 20090201
  2. RISPERDAL [Concomitant]
     Dates: start: 20050101, end: 20070101
  3. CLOZARIL [Concomitant]
     Dates: start: 20050101, end: 20070101
  4. HALDOL [Concomitant]
     Dates: start: 20050101
  5. THORAZINE [Concomitant]
     Dates: start: 20050101, end: 20060101
  6. CYMBALTA [Concomitant]
     Dates: start: 20090618
  7. PROZAC [Concomitant]
  8. LAMICTAL [Concomitant]
  9. TOPAMAX [Concomitant]
  10. RANITIDINE HCL [Concomitant]
     Dates: start: 20090618
  11. GRIS-PEG [Concomitant]
     Dates: start: 20090618
  12. NEURONTIN [Concomitant]
     Dates: start: 20090618
  13. NAPROXEN [Concomitant]
     Dosage: 250 MG TO 1500 MG
     Dates: start: 20090618

REACTIONS (9)
  - BLOOD TRIGLYCERIDES INCREASED [None]
  - DIABETES MELLITUS [None]
  - EXTRAPYRAMIDAL DISORDER [None]
  - FIBROMYALGIA [None]
  - GLUCOSE TOLERANCE IMPAIRED [None]
  - OBESITY [None]
  - PANCREATITIS [None]
  - TARDIVE DYSKINESIA [None]
  - TRANSIENT ISCHAEMIC ATTACK [None]
